FAERS Safety Report 5857066-1 (Version None)
Quarter: 2008Q3

REPORT INFORMATION
  Report Type: 
  Country: None (occurrence: None)
  Receive Date: 20080825
  Receipt Date: 20080808
  Transmission Date: 20090109
  Serious: No
  Sender: FDA-Public Use
  Company Number: US-BOEHRINGER INGELHEIM GMBH, GERMANY-2008-BP-12635BP

PATIENT
  Sex: Male

DRUGS (3)
  1. ZANTAC 150 [Suspect]
     Indication: DYSPEPSIA
     Route: 048
     Dates: start: 20080805
  2. AMBIEN [Concomitant]
     Indication: SLEEP DISORDER
     Route: 048
  3. BC ANALGESIC POWDER [Concomitant]
     Indication: HEADACHE
     Route: 048

REACTIONS (1)
  - FAECES DISCOLOURED [None]
